FAERS Safety Report 9565301 (Version 3)
Quarter: 2014Q1

REPORT INFORMATION
  Report Type: Report from Study
  Country: JP (occurrence: JP)
  Receive Date: 20130930
  Receipt Date: 20140123
  Transmission Date: 20141002
  Serious: Yes (Hospitalization, Other)
  Sender: FDA-Public Use
  Company Number: JP-ABBVIE-13P-087-1152680-00

PATIENT
  Age: 60 Year
  Sex: Male

DRUGS (8)
  1. LIPACREON [Suspect]
     Indication: PANCREATIC INSUFFICIENCY
     Route: 048
     Dates: start: 20120813
  2. RABEPRAZOLE SODIUM [Concomitant]
     Indication: HYPERCHLORHYDRIA
     Route: 048
  3. RABEPRAZOLE SODIUM [Concomitant]
     Indication: PROPHYLAXIS
  4. TELMISARTAN [Concomitant]
     Indication: HYPERTENSION
     Route: 048
     Dates: start: 20130328, end: 20130404
  5. TELMISARTAN [Concomitant]
     Dates: start: 20130405
  6. ARGATROBAN [Concomitant]
     Indication: CEREBRAL INFARCTION
     Dates: start: 20130324
  7. ASPIRIN [Concomitant]
     Indication: CEREBRAL INFARCTION
     Route: 048
     Dates: start: 20130325, end: 20130411
  8. CILOSTAZOL [Concomitant]
     Indication: CEREBRAL INFARCTION
     Route: 048
     Dates: start: 20130325

REACTIONS (6)
  - Femur fracture [Recovered/Resolved]
  - Cerebral infarction [Recovering/Resolving]
  - Fall [Unknown]
  - Disease complication [Unknown]
  - Hemiplegia [Unknown]
  - Hypocholesterolaemia [Recovered/Resolved]
